FAERS Safety Report 14964604 (Version 2)
Quarter: 2020Q3

REPORT INFORMATION
  Report Type: Report from Study
  Country: GB (occurrence: GB)
  Receive Date: 20180601
  Receipt Date: 20190916
  Transmission Date: 20201104
  Serious: Yes (Hospitalization)
  Sender: FDA-Public Use
  Company Number: GB-JNJFOC-20180535101

PATIENT
  Age: 64 Year
  Sex: Male

DRUGS (25)
  1. IBRUTINIB [Suspect]
     Active Substance: IBRUTINIB
     Indication: MANTLE CELL LYMPHOMA
     Route: 048
     Dates: start: 20171221
  2. TRANEXAMIC ACID. [Concomitant]
     Active Substance: TRANEXAMIC ACID
     Dosage: ONGOING?TIMEPOINT NAME? CYCLE 3
     Route: 065
  3. PREDNISOLONE. [Concomitant]
     Active Substance: PREDNISOLONE
     Dosage: DURATION? UNKNOWN?TIMEPOINT NAME? CYCLE 4
     Route: 065
  4. PREDNISOLONE. [Concomitant]
     Active Substance: PREDNISOLONE
     Dosage: FOR 5 DAYS?TIMEPOINT NAME? CYCLE 5
     Route: 065
  5. PREDNISOLONE. [Concomitant]
     Active Substance: PREDNISOLONE
     Dosage: TIMEPOINT NAME? CYCLE 8
     Route: 048
  6. COTRIMOXAZOLE [Concomitant]
     Active Substance: SULFAMETHOXAZOLE\TRIMETHOPRIM
     Dosage: DURATION? ON SATURDAY + SUNDAY?TIMEPOINT NAME? END OF TREATMENT
     Route: 065
  7. ORAMORPH [Concomitant]
     Active Substance: MORPHINE SULFATE
     Dosage: DURATION? 1 DAYS?TIMEPOINT NAME? CYCLE 3
     Route: 065
  8. CHLORPHENAMINE [Concomitant]
     Active Substance: CHLORPHENIRAMINE MALEATE
     Dosage: FREQUENCY? ONCE EVERY CYCLE?DURATION? ONCE?TIMEPOINT NAME? CYCLE 8
     Route: 065
  9. PARACETAMOL [Concomitant]
     Active Substance: ACETAMINOPHEN
     Dosage: ONCE EVERY CYCLE?TIMEPOINT NAME? CYCLE 5
     Route: 065
  10. RITUXIMAB. [Suspect]
     Active Substance: RITUXIMAB
     Indication: MANTLE CELL LYMPHOMA
     Route: 042
     Dates: start: 20171221
  11. SODIUM VALPROATE [Concomitant]
     Active Substance: VALPROATE SODIUM
     Dosage: FREQUENCY: AT NIGHT ?DURATION: ONGOING?TIMEPOINT NAME : CYCLE 3
     Route: 065
  12. VITAMIN K [Concomitant]
     Active Substance: PHYTONADIONE
     Dosage: DURATION? 3 DAYS?TIMEPOINT NAME? CYCLE 4
     Route: 065
  13. FLUCLOXACILLIN [Concomitant]
     Active Substance: FLUCLOXACILLIN
     Dosage: TIMEPOINT NAME? CYCLE 5
     Route: 042
  14. ZERO                               /00011102/ [Concomitant]
     Dosage: TIMEPOINTNAME? CYCLE 8
     Route: 061
  15. MEROPENEM. [Concomitant]
     Active Substance: MEROPENEM
     Dosage: DURATION? 2 DAYS?TIMEPOINT NAME? CYCLE 3
     Route: 065
  16. DOXYCYCLINE. [Concomitant]
     Active Substance: DOXYCYCLINE
     Dosage: UNKNOWN DOSE FOR 7 DAYS?TIMEPOINT NAME? CYCLE 7
     Route: 065
  17. ORAMORPH [Concomitant]
     Active Substance: MORPHINE SULFATE
     Dosage: TIMEPOINT NAME? CYCLE 5
     Route: 065
  18. CELECOXIB. [Concomitant]
     Active Substance: CELECOXIB
     Dosage: TIMEPOINT NAME? CYCLE 7
     Route: 065
  19. DOXYCYCLINE. [Concomitant]
     Active Substance: DOXYCYCLINE
     Dosage: DURATION? 7 DAYS?TIMEPOINT NAME? CYCLE 3
     Route: 065
  20. ENOXAPARIN [Concomitant]
     Active Substance: ENOXAPARIN
     Dosage: DURATION? 2DAYS?TIMEPOINT NAME?  CYCLE 3
     Route: 065
  21. PREDNISOLONE. [Concomitant]
     Active Substance: PREDNISOLONE
     Dosage: TIMEPOINT NAME? CYCLE 7
     Route: 065
  22. EKLIRA [Concomitant]
     Active Substance: ACLIDINIUM BROMIDE
     Dosage: DURATION? ONGOING?TIMEPOINT NAME? CYCLE 4
     Route: 065
  23. SALBUTAMOL [Concomitant]
     Active Substance: ALBUTEROL
     Dosage: DURATION? ONGOING?TIMEPOINT NAME? CYCLE 4
     Route: 065
  24. ACETAMINOPHEN AND CODEINE [Concomitant]
     Active Substance: ACETAMINOPHEN\CODEINE PHOSPHATE
     Dosage: DURATION? ONGOING?TIMEPOINT NAME? CYCLE 3
     Route: 065
  25. RAMIPRIL. [Concomitant]
     Active Substance: RAMIPRIL
     Dosage: DURATION? ONGOING?TIMEPOINT NAME? CYCLE 4
     Route: 065

REACTIONS (1)
  - Hypoxia [Recovered/Resolved]

NARRATIVE: CASE EVENT DATE: 20180125
